FAERS Safety Report 4885334-9 (Version None)
Quarter: 2006Q1

REPORT INFORMATION
  Report Type: 
  Country: None (occurrence: None)
  Receive Date: 20060119
  Receipt Date: 20060105
  Transmission Date: 20060701
  Serious: Yes (Hospitalization)
  Sender: FDA-Public Use
  Company Number: 2006SE00110

PATIENT
  Age: 65 Year
  Sex: Male

DRUGS (3)
  1. NEXIUM [Suspect]
     Indication: DUODENAL ULCER
     Route: 048
     Dates: start: 20051007, end: 20051102
  2. IMACILLIN [Suspect]
     Indication: DUODENAL ULCER
     Route: 048
     Dates: start: 20051007, end: 20051102
  3. KLACID [Suspect]
     Indication: DUODENAL ULCER
     Route: 048
     Dates: start: 20051007, end: 20051102

REACTIONS (6)
  - CHOLESTASIS [None]
  - HEPATIC STEATOSIS [None]
  - HEPATOMEGALY [None]
  - JAUNDICE [None]
  - PANCREATITIS [None]
  - WEIGHT DECREASED [None]
